FAERS Safety Report 6745714-3 (Version None)
Quarter: 2010Q2

REPORT INFORMATION
  Report Type: 
  Country: None (occurrence: None)
  Receive Date: 20100528
  Receipt Date: 20100521
  Transmission Date: 20101027
  Serious: Yes (Hospitalization)
  Sender: FDA-Public Use
  Company Number: FR-JNJFOC-20100509513

PATIENT
  Sex: Female

DRUGS (4)
  1. HALDOL [Suspect]
     Indication: AGITATION
     Route: 048
  2. KARDEGIC [Concomitant]
     Route: 065
  3. EQUANIL [Concomitant]
     Route: 065
  4. LEVOTHYROXINE SODIUM [Concomitant]
     Route: 065

REACTIONS (1)
  - SOMNOLENCE [None]
